FAERS Safety Report 5535386-8 (Version None)
Quarter: 2007Q4

REPORT INFORMATION
  Report Type: 
  Country: None (occurrence: None)
  Receive Date: 20071206
  Receipt Date: 20071126
  Transmission Date: 20080405
  Serious: Yes (Disabling, Other)
  Sender: FDA-Public Use
  Company Number: GB-PFIZER INC-2007095666

PATIENT
  Age: 65 Year

DRUGS (6)
  1. LYRICA [Suspect]
     Indication: NEURALGIA
     Route: 048
  2. ACYCLOVIR [Concomitant]
     Indication: NEURALGIA
     Route: 048
     Dates: start: 20060308
  3. AMITRIPTLINE HCL [Concomitant]
     Indication: NEURALGIA
     Route: 048
  4. DICLOFENAC [Concomitant]
     Indication: NEURALGIA
     Route: 048
  5. GABAPENTIN [Concomitant]
     Indication: NEURALGIA
     Route: 048
  6. TRAMADOL HCL [Concomitant]
     Indication: NEURALGIA
     Route: 048

REACTIONS (2)
  - BLINDNESS [None]
  - CHOROIDAL NEOVASCULARISATION [None]
